FAERS Safety Report 17314106 (Version 1)
Quarter: 2020Q1

REPORT INFORMATION
  Report Type: Spontaneous
  Country: US (occurrence: US)
  Receive Date: 20200107
  Receipt Date: 20200107
  Transmission Date: 20200409
  Serious: Yes (Death)
  Sender: FDA-Public Use
  Company Number: None

PATIENT
  Age: 63 Year
  Sex: Male
  Weight: 67.4 kg

DRUGS (1)
  1. YESCARTA [Suspect]
     Active Substance: AXICABTAGENE CILOLEUCEL
     Indication: DIFFUSE LARGE B-CELL LYMPHOMA
     Route: 042

REACTIONS (16)
  - Pancytopenia [None]
  - Disease progression [None]
  - Neurotoxicity [None]
  - Substance-induced psychotic disorder [None]
  - Mental status changes [None]
  - Cytokine release syndrome [None]
  - Hypoxia [None]
  - Metastases to liver [None]
  - Splenomegaly [None]
  - Pyrexia [None]
  - Hypotension [None]
  - Multiple organ dysfunction syndrome [None]
  - Gastrointestinal haemorrhage [None]
  - Metastases to lung [None]
  - Pulmonary alveolar haemorrhage [None]
  - Somnolence [None]

NARRATIVE: CASE EVENT DATE: 20191224
